FAERS Safety Report 19240363 (Version 1)
Quarter: 2021Q2

REPORT INFORMATION
  Report Type: Spontaneous
  Country: US (occurrence: US)
  Receive Date: 20210511
  Receipt Date: 20210511
  Transmission Date: 20210717
  Serious: Yes (Other)
  Sender: FDA-Public Use
  Company Number: US-NOVOPROD-809362

PATIENT
  Sex: Female

DRUGS (2)
  1. NOVOLOG MIX 70/30 [Suspect]
     Active Substance: INSULIN ASPART
     Indication: TYPE 2 DIABETES MELLITUS
     Dosage: 10 IU (MORNING) AND 10 IU (NIGHT)
     Route: 058
     Dates: start: 20210407
  2. TRESIBA [Concomitant]
     Active Substance: INSULIN DEGLUDEC
     Indication: TYPE 2 DIABETES MELLITUS
     Dosage: 20 IU, BID
     Route: 058
     Dates: start: 2020

REACTIONS (6)
  - Nausea [Recovered/Resolved]
  - Blood glucose increased [Recovered/Resolved]
  - Thrombosis [Unknown]
  - Red blood cell count decreased [Unknown]
  - Decreased appetite [Unknown]
  - Weight decreased [Unknown]

NARRATIVE: CASE EVENT DATE: 202104
